FAERS Safety Report 18350395 (Version 1)
Quarter: 2020Q4

REPORT INFORMATION
  Report Type: Spontaneous
  Country: US (occurrence: US)
  Receive Date: 20201006
  Receipt Date: 20201006
  Transmission Date: 20210114
  Serious: Yes (Hospitalization)
  Sender: FDA-Public Use
  Company Number: US-SA-2020SA272360

PATIENT

DRUGS (1)
  1. ACT DRY MOUTH LOZENGES [Suspect]
     Active Substance: XYLITOL
     Route: 048

REACTIONS (1)
  - Blood alcohol [Unknown]
